FAERS Safety Report 21764206 (Version 3)
Quarter: 2023Q1

REPORT INFORMATION
  Report Type: Spontaneous
  Country: US (occurrence: US)
  Receive Date: 20221222
  Receipt Date: 20230309
  Transmission Date: 20230418
  Serious: No
  Sender: FDA-Public Use
  Company Number: US-ABBVIE-4224523

PATIENT
  Sex: Female

DRUGS (1)
  1. HUMIRA [Suspect]
     Active Substance: ADALIMUMAB
     Indication: Diverticulitis
     Route: 058

REACTIONS (4)
  - Off label use [Unknown]
  - Sinus disorder [Unknown]
  - Tremor [Unknown]
  - Wrong technique in product usage process [Not Recovered/Not Resolved]
